FAERS Safety Report 4413923-4 (Version None)
Quarter: 2004Q3

REPORT INFORMATION
  Report Type: 
  Country: None (occurrence: None)
  Receive Date: 20040803
  Receipt Date: 20040714
  Transmission Date: 20050211
  Serious: Yes (Death, Other)
  Sender: FDA-Public Use
  Company Number: PHBS2004JP09429

PATIENT
  Age: 46 Year
  Sex: Female

DRUGS (1)
  1. CYCLOSPORINE [Suspect]
     Indication: THYMOMA
     Dosage: 350 MG/D
     Route: 048
     Dates: start: 20021102

REACTIONS (9)
  - ADRENAL INSUFFICIENCY [None]
  - DEATH [None]
  - DERMATITIS EXFOLIATIVE [None]
  - DIARRHOEA [None]
  - DRUG INEFFECTIVE [None]
  - HYPERKALAEMIA [None]
  - INFECTION [None]
  - PYREXIA [None]
  - SKIN DISORDER [None]
